FAERS Safety Report 16750533 (Version 1)
Quarter: 2019Q3

REPORT INFORMATION
  Report Type: Spontaneous
  Country: US (occurrence: US)
  Receive Date: 20190828
  Receipt Date: 20190828
  Transmission Date: 20191005
  Serious: No
  Sender: FDA-Public Use
  Company Number: US-PFIZER INC-2019369830

PATIENT
  Age: 70 Year
  Sex: Female
  Weight: 67.59 kg

DRUGS (1)
  1. IBRANCE [Suspect]
     Active Substance: PALBOCICLIB
     Indication: BREAST CANCER METASTATIC
     Dosage: 125 MG, CYCLIC(ONCE DAILY 21 DAYS ON, 7 DAYS OFF)
     Route: 048
     Dates: start: 201901

REACTIONS (1)
  - Alopecia [Unknown]
